FAERS Safety Report 7210211-8 (Version None)
Quarter: 2011Q1

REPORT INFORMATION
  Report Type: 
  Country: None (occurrence: None)
  Receive Date: 20110105
  Receipt Date: 20101228
  Transmission Date: 20110831
  Serious: Yes (Other)
  Sender: FDA-Public Use
  Company Number: US-JNJFOC-20070803010

PATIENT
  Sex: Male
  Weight: 137.89 kg

DRUGS (5)
  1. RISPERDAL [Suspect]
     Indication: SLEEP DISORDER THERAPY
  2. RISPERDAL [Suspect]
     Indication: BIPOLAR DISORDER
  3. RISPERDAL [Suspect]
     Indication: PARANOIA
  4. RISPERDAL [Suspect]
     Indication: PSYCHOTIC DISORDER
  5. RISPERDAL [Suspect]
     Indication: MANIA

REACTIONS (8)
  - RENAL FAILURE [None]
  - WEIGHT DECREASED [None]
  - HYPERTENSION [None]
  - WEIGHT INCREASED [None]
  - TYPE 2 DIABETES MELLITUS [None]
  - DIABETIC NEUROPATHY [None]
  - TARDIVE DYSKINESIA [None]
  - WRONG TECHNIQUE IN DRUG USAGE PROCESS [None]
